FAERS Safety Report 9892849 (Version 1)
Quarter: 2014Q1

REPORT INFORMATION
  Report Type: Spontaneous
  Country: GB (occurrence: GB)
  Receive Date: 20140213
  Receipt Date: 20140213
  Transmission Date: 20141002
  Serious: Yes (Other)
  Sender: FDA-Public Use
  Company Number: GB-AMGEN-GBRSP2014009127

PATIENT
  Sex: 0

DRUGS (1)
  1. PROLIA [Suspect]
     Indication: PRODUCT USED FOR UNKNOWN INDICATION
     Route: 065

REACTIONS (8)
  - Osteonecrosis of jaw [Unknown]
  - Pain in jaw [Not Recovered/Not Resolved]
  - Skin irritation [Unknown]
  - Sleep apnoea syndrome [Unknown]
  - Pollakiuria [Unknown]
  - Mouth ulceration [Unknown]
  - Erythema [Unknown]
  - Urticaria [Unknown]
